FAERS Safety Report 5508104-7 (Version None)
Quarter: 2007Q4

REPORT INFORMATION
  Report Type: 
  Country: None (occurrence: None)
  Receive Date: 20071106
  Receipt Date: 20071025
  Transmission Date: 20080405
  Serious: Yes (Hospitalization, Other)
  Sender: FDA-Public Use
  Company Number: US-PFIZER INC-2007091356

PATIENT
  Sex: Female
  Weight: 88.5 kg

DRUGS (4)
  1. CHANTIX [Suspect]
     Indication: SMOKING CESSATION THERAPY
     Route: 048
     Dates: start: 20070924, end: 20071015
  2. KLONOPIN [Suspect]
     Indication: ANXIETY
     Route: 048
  3. ZYRTEC [Concomitant]
  4. MONTELUKAST SODIUM [Concomitant]

REACTIONS (14)
  - ANXIETY [None]
  - BLOOD PRESSURE INCREASED [None]
  - CARDIAC ARREST [None]
  - CEREBROVASCULAR ACCIDENT [None]
  - DIPLOPIA [None]
  - HYPERHIDROSIS [None]
  - HYPOAESTHESIA [None]
  - LABILE BLOOD PRESSURE [None]
  - LETHARGY [None]
  - PALPITATIONS [None]
  - PARAESTHESIA [None]
  - PUPILLARY REFLEX IMPAIRED [None]
  - STRESS [None]
  - THINKING ABNORMAL [None]
